FAERS Safety Report 4273870-8 (Version None)
Quarter: 2004Q1

REPORT INFORMATION
  Report Type: 
  Country: None (occurrence: None)
  Receive Date: 20040115
  Receipt Date: 20031231
  Transmission Date: 20041129
  Serious: Yes (Hospitalization)
  Sender: FDA-Public Use
  Company Number: USA040155659

PATIENT
  Age: 21 Year
  Sex: Male
  Weight: 66 kg

DRUGS (1)
  1. ZYPREXA ZYDIS [Suspect]
     Indication: SCHIZOPHRENIA
     Dosage: 20 MG/DAY
     Dates: start: 20030201

REACTIONS (8)
  - ANXIETY [None]
  - CONDITION AGGRAVATED [None]
  - EATING DISORDER [None]
  - POLYDIPSIA PSYCHOGENIC [None]
  - SCHIZOPHRENIA [None]
  - TREATMENT NONCOMPLIANCE [None]
  - VOMITING [None]
  - WEIGHT DECREASED [None]
